FAERS Safety Report 24283375 (Version 1)
Quarter: 2024Q3

REPORT INFORMATION
  Report Type: Spontaneous
  Country: CN (occurrence: None)
  Receive Date: 20240904
  Receipt Date: 20240904
  Transmission Date: 20241016
  Serious: Yes (Other)
  Sender: ASTRAZENECA
  Company Number: 2024A197238

PATIENT
  Age: 27495 Day
  Sex: Female
  Weight: 58 kg

DRUGS (1)
  1. BRILINTA [Suspect]
     Active Substance: TICAGRELOR
     Indication: Antiplatelet therapy
     Route: 048
     Dates: start: 20240814, end: 20240819

REACTIONS (2)
  - Chest discomfort [Recovered/Resolved]
  - Breath holding [Recovered/Resolved]

NARRATIVE: CASE EVENT DATE: 20240819
